FAERS Safety Report 9630985 (Version 6)
Quarter: 2014Q1

REPORT INFORMATION
  Report Type: Spontaneous
  Country: JP (occurrence: JP)
  Receive Date: 20131018
  Receipt Date: 20140307
  Transmission Date: 20141002
  Serious: Yes (Death, Hospitalization)
  Sender: FDA-Public Use
  Company Number: JP-PFIZER INC-2013283969

PATIENT
  Age: 14 Year
  Sex: Female
  Weight: 37 kg

DRUGS (12)
  1. SOLU-MEDROL [Suspect]
     Indication: GRAFT VERSUS HOST DISEASE
     Dosage: 20 MG, 2X/DAY (DAY 128)
     Route: 041
     Dates: start: 20130305, end: 20130319
  2. SOLU-MEDROL [Suspect]
     Dosage: 16 MG, 2X/DAY
     Route: 041
     Dates: start: 20130320, end: 20130327
  3. SOLU-MEDROL [Suspect]
     Dosage: 25 MG, DAILY
     Route: 041
     Dates: start: 20130328, end: 20130402
  4. SOLU-MEDROL [Suspect]
     Dosage: 20 MG, 1X/DAY
     Route: 041
     Dates: start: 20130403, end: 20130408
  5. SOLU-MEDROL [Suspect]
     Dosage: 10 MG, 1X/DAY
     Route: 041
     Dates: start: 20130409, end: 20130415
  6. BECLOMETHASONE DIPROPIONATE [Suspect]
     Indication: GRAFT VERSUS HOST DISEASE
     Dosage: UNK
     Route: 048
     Dates: start: 20130330, end: 20130611
  7. BECLOMETHASONE DIPROPIONATE [Suspect]
     Indication: GRAFT VERSUS HOST DISEASE
     Dosage: 1 MG, 4X/DAY
     Route: 048
     Dates: start: 20130402, end: 20130611
  8. PREDONINE [Suspect]
     Indication: GRAFT VERSUS HOST DISEASE
     Dosage: 10 MG, 1X/DAY
     Route: 048
     Dates: start: 20130416, end: 20130418
  9. PREDONINE [Suspect]
     Dosage: 5 MG, 1X/DAY
     Route: 048
     Dates: start: 20130419, end: 20130422
  10. PROGRAF [Suspect]
     Indication: PROPHYLAXIS AGAINST GRAFT VERSUS HOST DISEASE
     Dosage: 0.2 MG, 2X/DAY
     Route: 048
     Dates: start: 20121227, end: 20130517
  11. PROGRAF [Suspect]
     Indication: GRAFT VERSUS HOST DISEASE
  12. FUNGUARD [Concomitant]
     Indication: ANTIFUNGAL PROPHYLAXIS
     Dosage: 50 MG, 1X/DAY
     Route: 041
     Dates: start: 20130215, end: 20130315

REACTIONS (2)
  - Aspergillus infection [Fatal]
  - Hyperglycaemia [Recovering/Resolving]
